FAERS Safety Report 10262130 (Version 1)
Quarter: 2014Q2

REPORT INFORMATION
  Report Type: Spontaneous
  Country: NL (occurrence: NL)
  Receive Date: 20140626
  Receipt Date: 20140626
  Transmission Date: 20141212
  Serious: Yes (Life-Threatening, Hospitalization)
  Sender: FDA-Public Use
  Company Number: NL-BAYER-2014-093545

PATIENT
  Sex: Male

DRUGS (3)
  1. CIPROFLOXACIN BETAIN [Suspect]
     Indication: LEGIONELLA INFECTION
     Dosage: 400 MG, BID
     Route: 042
  2. CEFAZOLIN [Concomitant]
     Indication: ANTIBIOTIC THERAPY
  3. GENTAMICIN [Concomitant]
     Indication: ANTIBIOTIC THERAPY

REACTIONS (2)
  - Pathogen resistance [None]
  - Interstitial lung disease [Recovered/Resolved]
